FAERS Safety Report 13012370 (Version 1)
Quarter: 2016Q4

REPORT INFORMATION
  Report Type: Spontaneous
  Country: US (occurrence: US)
  Receive Date: 20161209
  Receipt Date: 20161209
  Transmission Date: 20170207
  Serious: No
  Sender: FDA-Public Use
  Company Number: None

PATIENT

DRUGS (2)
  1. NEOPROFEN [Suspect]
     Active Substance: IBUPROFEN LYSINE
     Route: 042
  2. CALDOLOR [Suspect]
     Active Substance: IBUPROFEN
     Route: 042

REACTIONS (2)
  - Drug dispensing error [None]
  - Product selection error [None]
